FAERS Safety Report 13215296 (Version 1)
Quarter: 2017Q1

REPORT INFORMATION
  Report Type: Spontaneous
  Country: US (occurrence: US)
  Receive Date: 20170210
  Receipt Date: 20170210
  Transmission Date: 20170428
  Serious: No
  Sender: FDA-Public Use
  Company Number: US-ROCHE-1761848

PATIENT
  Sex: Female

DRUGS (5)
  1. DAPSONE. [Concomitant]
     Active Substance: DAPSONE
  2. MECLIZINE HCL [Concomitant]
     Active Substance: MECLIZINE HYDROCHLORIDE
  3. XOLAIR [Suspect]
     Active Substance: OMALIZUMAB
     Indication: IDIOPATHIC URTICARIA
     Dosage: USE AS DIRECTED BY PHYSICIAN
     Route: 065
     Dates: start: 20110422
  4. ALPRAZOLAM. [Concomitant]
     Active Substance: ALPRAZOLAM
  5. TRAZODONE HYDROCHLORIDE. [Concomitant]
     Active Substance: TRAZODONE HYDROCHLORIDE

REACTIONS (1)
  - Urticaria [Not Recovered/Not Resolved]
